FAERS Safety Report 20343301 (Version 1)
Quarter: 2022Q1

REPORT INFORMATION
  Report Type: Spontaneous
  Country: US (occurrence: US)
  Receive Date: 20220117
  Receipt Date: 20220117
  Transmission Date: 20220423
  Serious: No
  Sender: FDA-Public Use
  Company Number: US-AMGEN-USASP2022001773

PATIENT
  Sex: Female

DRUGS (1)
  1. MVASI [Suspect]
     Active Substance: BEVACIZUMAB-AWWB
     Indication: Vulval cancer metastatic
     Dosage: 800 MILLIGRAM
     Route: 065
     Dates: start: 20211201

REACTIONS (2)
  - Platelet count abnormal [Unknown]
  - Neutrophil count abnormal [Unknown]
